FAERS Safety Report 4619320-0 (Version None)
Quarter: 2005Q1

REPORT INFORMATION
  Report Type: 
  Country: None (occurrence: None)
  Receive Date: 20050318
  Receipt Date: 20050318
  Transmission Date: 20050727
  Serious: Yes (Hospitalization)
  Sender: FDA-Public Use
  Company Number: None

PATIENT
  Sex: Female
  Weight: 44.9061 kg

DRUGS (9)
  1. DILANTIN [Suspect]
     Indication: CONVULSION
     Dosage: 300 MG PO QD [PRIOR TO ADMISSION]
     Route: 048
  2. IMDUR [Concomitant]
  3. LISINOPRIL [Concomitant]
  4. PRILOSEC [Concomitant]
  5. DEPAKOTE [Concomitant]
  6. AMIODARONE [Concomitant]
  7. COUMADIN [Concomitant]
  8. TYLENOL (CAPLET) [Concomitant]
  9. LANOXIN [Concomitant]

REACTIONS (2)
  - ANTICONVULSANT TOXICITY [None]
  - COMA [None]
